FAERS Safety Report 18462523 (Version 1)
Quarter: 2020Q4

REPORT INFORMATION
  Report Type: Spontaneous
  Country: CA (occurrence: CA)
  Receive Date: 20201104
  Receipt Date: 20201104
  Transmission Date: 20210114
  Serious: Yes (Other)
  Sender: FDA-Public Use
  Company Number: CA-GLAXOSMITHKLINE-CA2020GSK218147

PATIENT
  Sex: Male

DRUGS (2)
  1. AVANDIA [Suspect]
     Active Substance: ROSIGLITAZONE MALEATE
     Indication: DIABETES MELLITUS
     Dosage: 4 MG, QD
     Route: 048
     Dates: start: 20010423, end: 20011018
  2. AVANDIA [Suspect]
     Active Substance: ROSIGLITAZONE MALEATE
     Dosage: 8 MG, QD
     Route: 048
     Dates: start: 20011105, end: 20020830

REACTIONS (7)
  - Myocardial ischaemia [Unknown]
  - Ventricular dysfunction [Unknown]
  - Cardiac disorder [Unknown]
  - Cardiac discomfort [Unknown]
  - Coronary arterial stent insertion [Unknown]
  - Myocardial infarction [Unknown]
  - Coronary artery disease [Unknown]
